FAERS Safety Report 8009311-4 (Version None)
Quarter: 2011Q4

REPORT INFORMATION
  Report Type: 
  Country: None (occurrence: None)
  Receive Date: 20111227
  Receipt Date: 20111222
  Transmission Date: 20120403
  Serious: Yes (Other)
  Sender: FDA-Public Use
  Company Number: US-PFIZER INC-2011312245

PATIENT
  Sex: Female
  Weight: 95.238 kg

DRUGS (3)
  1. EFFEXOR [Concomitant]
     Indication: PANIC DISORDER
     Dosage: 225 MG, DAILY
  2. XANAX XR [Suspect]
     Indication: PANIC DISORDER
     Dosage: 1.5 MG, 2X/DAY
     Route: 048
  3. NAPROXEN (ALEVE) [Suspect]
     Indication: PAIN
     Dosage: UNKNOWN DOSE TWO TIMES A DAY

REACTIONS (5)
  - INFECTION [None]
  - TINNITUS [None]
  - FRUSTRATION [None]
  - RHEUMATOID ARTHRITIS [None]
  - INFLUENZA [None]
